FAERS Safety Report 4511291-0 (Version None)
Quarter: 2004Q4

REPORT INFORMATION
  Report Type: 
  Country: None (occurrence: None)
  Receive Date: 20041122
  Receipt Date: 20041107
  Transmission Date: 20050328
  Serious: Yes (Hospitalization)
  Sender: FDA-Public Use
  Company Number: K200401731

PATIENT
  Age: 53 Year
  Sex: Female

DRUGS (1)
  1. METHIMAZOLE [Suspect]
     Indication: BASEDOW'S DISEASE
     Dosage: 30 MG, QD

REACTIONS (15)
  - AGRANULOCYTOSIS [None]
  - APLASTIC ANAEMIA [None]
  - AUTOIMMUNE DISORDER [None]
  - BLOOD CULTURE POSITIVE [None]
  - BONE MARROW DEPRESSION [None]
  - GOITRE [None]
  - HYPERTHYROIDISM [None]
  - IMMUNODEFICIENCY [None]
  - LYMPH NODE PAIN [None]
  - PALPITATIONS [None]
  - PHARYNGEAL ERYTHEMA [None]
  - PHARYNGOLARYNGEAL PAIN [None]
  - PLASMACYTOSIS [None]
  - PYREXIA [None]
  - STREPTOCOCCAL INFECTION [None]
